FAERS Safety Report 12649004 (Version 1)
Quarter: 2016Q3

REPORT INFORMATION
  Report Type: Spontaneous
  Country: US (occurrence: US)
  Receive Date: 20160812
  Receipt Date: 20160812
  Transmission Date: 20161109
  Serious: Yes (Life-Threatening, Hospitalization, Other)
  Sender: FDA-Public Use
  Company Number: US-BRISTOL-MYERS SQUIBB COMPANY-BMS-2016-064642

PATIENT
  Age: 60 Year
  Sex: Female

DRUGS (2)
  1. IPILIMUMAB [Suspect]
     Active Substance: IPILIMUMAB
     Indication: LUNG ADENOCARCINOMA
     Dosage: 1 MG/KG, Q6WK
     Route: 065
  2. NIVOLUMAB [Suspect]
     Active Substance: NIVOLUMAB
     Indication: LUNG ADENOCARCINOMA
     Dosage: 1 MG/KG, Q2WK
     Route: 065

REACTIONS (6)
  - Product use issue [Unknown]
  - Diabetic ketoacidosis [Recovered/Resolved]
  - Malignant neoplasm progression [Unknown]
  - Cutaneous sarcoidosis [Not Recovered/Not Resolved]
  - Type 1 diabetes mellitus [Unknown]
  - Rash [Recovered/Resolved]
